FAERS Safety Report 9337112 (Version 1)
Quarter: 2013Q2

REPORT INFORMATION
  Report Type: Spontaneous
  Country: US (occurrence: US)
  Receive Date: 20130607
  Receipt Date: 20130607
  Transmission Date: 20140414
  Serious: Yes (Other)
  Sender: FDA-Public Use
  Company Number: US-UCBSA-088172

PATIENT
  Sex: 0

DRUGS (10)
  1. CIMZIA [Suspect]
  2. PREDNISONE [Suspect]
  3. AMBIEN [Concomitant]
  4. XANAX [Concomitant]
     Dosage: AS REQUIRED
  5. D3 [Concomitant]
  6. PROBIOTIC [Concomitant]
  7. ROWASA [Concomitant]
  8. FISH OIL [Concomitant]
  9. LIALDA [Concomitant]
  10. B12 [Concomitant]

REACTIONS (8)
  - Osteonecrosis [Unknown]
  - Haemoglobin decreased [Unknown]
  - Haematocrit decreased [Unknown]
  - Supraventricular tachycardia [Unknown]
  - Musculoskeletal pain [Unknown]
  - Neck pain [Unknown]
  - Anxiety [Unknown]
  - Arthralgia [Unknown]
